FAERS Safety Report 20247330 (Version 3)
Quarter: 2022Q2

REPORT INFORMATION
  Report Type: Report from Study
  Country: US (occurrence: US)
  Receive Date: 20211229
  Receipt Date: 20220417
  Transmission Date: 20220721
  Serious: No
  Sender: FDA-Public Use
  Company Number: US-JNJFOC-20211225728

PATIENT
  Age: 48 Year
  Sex: Female
  Weight: 96.248 kg

DRUGS (1)
  1. TREMFYA [Suspect]
     Active Substance: GUSELKUMAB
     Indication: Product used for unknown indication
     Route: 065

REACTIONS (3)
  - Device issue [Unknown]
  - Accidental exposure to product [Unknown]
  - Product dose omission issue [Unknown]
